FAERS Safety Report 8232483-3 (Version None)
Quarter: 2012Q1

REPORT INFORMATION
  Report Type: 
  Country: None (occurrence: None)
  Receive Date: 20120323
  Receipt Date: 20120321
  Transmission Date: 20120608
  Serious: Yes (Other)
  Sender: FDA-Public Use
  Company Number: IT-PFIZER INC-2012074190

PATIENT
  Age: 37 Year
  Sex: Female

DRUGS (2)
  1. CIPROFLOXACIN HCL [Interacting]
     Indication: INFECTION
  2. ZIPRASIDONE HYDROCHLORIDE [Suspect]
     Dosage: 80 MG, UNK
     Dates: start: 20111001

REACTIONS (2)
  - DRUG INTERACTION [None]
  - CHEST PAIN [None]
